FAERS Safety Report 20803763 (Version 4)
Quarter: 2023Q2

REPORT INFORMATION
  Report Type: Spontaneous
  Country: US (occurrence: US)
  Receive Date: 20220509
  Receipt Date: 20230629
  Transmission Date: 20230721
  Serious: No
  Sender: FDA-Public Use
  Company Number: US-PFIZER INC-202200641819

PATIENT
  Age: 50 Year
  Sex: Female

DRUGS (1)
  1. XELJANZ XR [Suspect]
     Active Substance: TOFACITINIB CITRATE
     Indication: Rheumatoid arthritis
     Dosage: 11 MG, DAILY
     Route: 048
     Dates: start: 20220420

REACTIONS (14)
  - Therapeutic response unexpected [Recovering/Resolving]
  - Abdominal pain upper [Recovered/Resolved]
  - Nausea [Unknown]
  - Fatigue [Unknown]
  - Pain in extremity [Unknown]
  - Rash [Recovering/Resolving]
  - Loss of personal independence in daily activities [Unknown]
  - Arthralgia [Not Recovered/Not Resolved]
  - Pain in extremity [Recovered/Resolved]
  - Gingivitis [Recovered/Resolved]
  - Fatigue [Unknown]
  - Somnolence [Unknown]
  - Joint swelling [Not Recovered/Not Resolved]
  - Peripheral swelling [Not Recovered/Not Resolved]

NARRATIVE: CASE EVENT DATE: 20220101
